FAERS Safety Report 24157517 (Version 1)
Quarter: 2024Q3

REPORT INFORMATION
  Report Type: Spontaneous
  Country: US (occurrence: None)
  Receive Date: 20240731
  Receipt Date: 20240731
  Transmission Date: 20241017
  Serious: Yes (Hospitalization)
  Sender: Public
  Company Number: None

PATIENT
  Age: 29 Month
  Sex: Female
  Weight: 18.5 kg

DRUGS (5)
  1. CALASPARGASE PEGOL-MKNL [Suspect]
     Active Substance: CALASPARGASE PEGOL-MKNL
     Dates: start: 20240605, end: 20240608
  2. Cytarabine 50 mg [Concomitant]
  3. Dexamethasone 86 mg [Concomitant]
  4. METHOTREXATE [Concomitant]
     Active Substance: METHOTREXATE
  5. VinCRlStine sulfate 4 mg [Concomitant]

REACTIONS (13)
  - Fatigue [None]
  - Malaise [None]
  - Rash [None]
  - Candida infection [None]
  - Fungal infection [None]
  - Renal abscess [None]
  - Splenic abscess [None]
  - Candida infection [None]
  - Endocarditis [None]
  - Blood pressure increased [None]
  - Haematoma infection [None]
  - Extradural abscess [None]
  - Postoperative wound infection [None]

NARRATIVE: CASE EVENT DATE: 20240723
